FAERS Safety Report 5231986-3 (Version None)
Quarter: 2007Q1

REPORT INFORMATION
  Report Type: 
  Country: None (occurrence: None)
  Receive Date: 20070202
  Receipt Date: 20061218
  Transmission Date: 20070707
  Serious: Yes (Hospitalization)
  Sender: FDA-Public Use
  Company Number: 2006US002432

PATIENT
  Age: 2 Year
  Sex: Male

DRUGS (2)
  1. PROTOPIC [Suspect]
     Indication: DERMATITIS ATOPIC
     Dosage: TOPICAL
     Route: 061
     Dates: start: 20061001
  2. VARICELLA VACCINES [Concomitant]

REACTIONS (2)
  - ECZEMA HERPETICUM [None]
  - VACCINATION COMPLICATION [None]
